FAERS Safety Report 25282082 (Version 2)
Quarter: 2025Q2

REPORT INFORMATION
  Report Type: Spontaneous
  Country: FR (occurrence: FR)
  Receive Date: 20250508
  Receipt Date: 20250519
  Transmission Date: 20250716
  Serious: Yes (Hospitalization, Other)
  Sender: TEVA
  Company Number: FR-TEVA-VS-3327635

PATIENT
  Age: 56 Year
  Sex: Male

DRUGS (3)
  1. PRAMIPEXOLE [Suspect]
     Active Substance: PRAMIPEXOLE
     Indication: Parkinson^s disease
     Route: 065
  2. PRAMIPEXOLE [Suspect]
     Active Substance: PRAMIPEXOLE
     Indication: Parkinson^s disease
     Route: 065
  3. LEVODOPA [Suspect]
     Active Substance: LEVODOPA
     Indication: Parkinson^s disease
     Dosage: MORE THAN 2550MG
     Route: 065

REACTIONS (6)
  - Dopamine dysregulation syndrome [Recovering/Resolving]
  - Overdose [Unknown]
  - Drug ineffective [Unknown]
  - Impulse-control disorder [Recovered/Resolved]
  - Drug abuse [Unknown]
  - Drug dependence [Recovered/Resolved]
